FAERS Safety Report 8056013-4 (Version None)
Quarter: 2011Q4

REPORT INFORMATION
  Report Type: 
  Country: None (occurrence: None)
  Receive Date: 20111216
  Receipt Date: 20110211
  Transmission Date: 20120403
  Serious: Yes (Hospitalization, Other)
  Sender: FDA-Public Use
  Company Number: 267061USA

PATIENT
  Sex: Female

DRUGS (1)
  1. PARAGARD T 380A [Suspect]
     Indication: CONTRACEPTION
     Dosage: I.U.
     Dates: start: 20020101, end: 20070801

REACTIONS (12)
  - PELVIC INFLAMMATORY DISEASE [None]
  - SALPINGITIS [None]
  - FALLOPIAN TUBE DISORDER [None]
  - ABDOMINAL DISTENSION [None]
  - VOMITING [None]
  - SCAR [None]
  - CYSTITIS [None]
  - OVARIAN CYST [None]
  - CHILLS [None]
  - PYREXIA [None]
  - KIDNEY INFECTION [None]
  - URINARY TRACT INFECTION [None]
